FAERS Safety Report 10667234 (Version 1)
Quarter: 2014Q4

REPORT INFORMATION
  Report Type: Spontaneous
  Country: US (occurrence: US)
  Receive Date: 20141222
  Receipt Date: 20141222
  Transmission Date: 20150529
  Serious: Yes (Other)
  Sender: FDA-Public Use
  Company Number: US-SUN PHARMACEUTICAL INDUSTRIES LTD-2014SUN02910

PATIENT
  Age: 49 Year

DRUGS (3)
  1. VENLAFAXINE [Interacting]
     Active Substance: VENLAFAXINE HYDROCHLORIDE
     Indication: PRODUCT USED FOR UNKNOWN INDICATION
     Dosage: UNK
     Route: 065
  2. CARBAMAZEPINE. [Suspect]
     Active Substance: CARBAMAZEPINE
     Indication: PRODUCT USED FOR UNKNOWN INDICATION
     Dosage: UNK, CHRONIC MEDICATION
     Route: 065
  3. VANCOMYCIN [Interacting]
     Active Substance: VANCOMYCIN
     Indication: RESPIRATORY TRACT INFECTION BACTERIAL
     Dosage: UNK
     Route: 065

REACTIONS (3)
  - Clonus [Unknown]
  - Drug interaction [Unknown]
  - Serotonin syndrome [Unknown]
